FAERS Safety Report 23192169 (Version 2)
Quarter: 2023Q4

REPORT INFORMATION
  Report Type: Report from Study
  Country: US (occurrence: US)
  Receive Date: 20231116
  Receipt Date: 20231123
  Transmission Date: 20240110
  Serious: No
  Sender: FDA-Public Use
  Company Number: US-002147023-NVSC2023US242890

PATIENT
  Age: 65 Year
  Sex: Female

DRUGS (2)
  1. PIQRAY [Suspect]
     Active Substance: ALPELISIB
     Indication: Hormone receptor positive HER2 negative breast cancer
     Dosage: 1 DOSAGE FORM, QD
     Route: 048
     Dates: start: 20231023
  2. PIQRAY [Suspect]
     Active Substance: ALPELISIB
     Dosage: DOSE REDUCED
     Route: 048

REACTIONS (1)
  - Hyperglycaemia [Unknown]

NARRATIVE: CASE EVENT DATE: 20231106
